FAERS Safety Report 16035679 (Version 1)
Quarter: 2019Q1

REPORT INFORMATION
  Report Type: Spontaneous
  Country: US (occurrence: US)
  Receive Date: 20190305
  Receipt Date: 20190305
  Transmission Date: 20190418
  Serious: No
  Sender: FDA-Public Use
  Company Number: US-SHIRE-US201907065

PATIENT
  Age: 27 Year
  Sex: Female

DRUGS (3)
  1. ADDERALL XR [Suspect]
     Active Substance: AMPHETAMINE ASPARTATE\AMPHETAMINE SULFATE\DEXTROAMPHETAMINE SACCHARATE\DEXTROAMPHETAMINE SULFATE
     Indication: ATTENTION DEFICIT/HYPERACTIVITY DISORDER
     Dosage: 40 MILLIGRAM, 1X/DAY:QD
     Route: 065
     Dates: end: 201901
  2. MYDAYIS [Suspect]
     Active Substance: AMPHETAMINE ASPARTATE\AMPHETAMINE SULFATE\DEXTROAMPHETAMINE SACCHARATE\DEXTROAMPHETAMINE SULFATE
     Indication: ATTENTION DEFICIT/HYPERACTIVITY DISORDER
     Dosage: 25 MILLIGRAM, 1X/DAY:QD
     Route: 065
     Dates: start: 201901, end: 201902
  3. ADDERALL XR [Suspect]
     Active Substance: AMPHETAMINE ASPARTATE\AMPHETAMINE SULFATE\DEXTROAMPHETAMINE SACCHARATE\DEXTROAMPHETAMINE SULFATE
     Dosage: 20 MILLIGRAM, 1X/DAY:QD
     Route: 065
     Dates: end: 201901

REACTIONS (2)
  - Product use issue [Unknown]
  - Nausea [Recovered/Resolved]

NARRATIVE: CASE EVENT DATE: 201901
